FAERS Safety Report 9721460 (Version 2)
Quarter: 2013Q4

REPORT INFORMATION
  Report Type: Spontaneous
  Country: JP (occurrence: JP)
  Receive Date: 20131129
  Receipt Date: 20131223
  Transmission Date: 20140711
  Serious: No
  Sender: FDA-Public Use
  Company Number: JP-TAKEDA-2013TJP003212

PATIENT
  Age: 65 Year
  Sex: Male
  Weight: 58 kg

DRUGS (4)
  1. NESINA TABLETS 25MG [Suspect]
     Indication: TYPE 2 DIABETES MELLITUS
     Dosage: 25 MG, QD
     Route: 048
     Dates: start: 20130206, end: 20131124
  2. IRBETAN [Suspect]
     Indication: HYPERTENSION
     Dosage: 100 MG, QD
     Route: 048
     Dates: start: 20130123, end: 20130805
  3. IRBETAN [Suspect]
     Dosage: 100 MG, QD
     Route: 048
     Dates: start: 20131125
  4. ADALAT CR [Concomitant]
     Indication: HYPERTENSION
     Dosage: 40 MG, 1 DAYS
     Route: 048
     Dates: start: 20130806, end: 20131124

REACTIONS (1)
  - Platelet count decreased [Not Recovered/Not Resolved]
